FAERS Safety Report 9008728 (Version 9)
Quarter: 2014Q4

REPORT INFORMATION
  Report Type: Spontaneous
  Country: CA (occurrence: CA)
  Receive Date: 20130111
  Receipt Date: 20141030
  Transmission Date: 20150529
  Serious: Yes (Hospitalization, Other)
  Sender: FDA-Public Use
  Company Number: CA-ROCHE-1178716

PATIENT
  Age: 35 Year
  Sex: Female

DRUGS (9)
  1. THEO-DUR [Concomitant]
     Active Substance: THEOPHYLLINE ANHYDROUS
  2. XOLAIR [Suspect]
     Active Substance: OMALIZUMAB
     Dosage: LAST DOSE WAS ON 03/JUN/2013
     Route: 058
     Dates: start: 20130603
  3. XOLAIR [Suspect]
     Active Substance: OMALIZUMAB
     Route: 058
     Dates: start: 20140506
  4. PULMICORT TURBUHALER [Concomitant]
     Active Substance: BUDESONIDE
  5. SYMBICORT [Concomitant]
     Active Substance: BUDESONIDE\FORMOTEROL FUMARATE DIHYDRATE
  6. XOLAIR [Suspect]
     Active Substance: OMALIZUMAB
     Route: 058
     Dates: start: 20130508
  7. XOLAIR [Suspect]
     Active Substance: OMALIZUMAB
     Indication: ASTHMA
     Route: 058
     Dates: start: 20121003
  8. VENTOLIN [Concomitant]
     Active Substance: ALBUTEROL SULFATE
  9. SINGULAIR [Concomitant]
     Active Substance: MONTELUKAST SODIUM

REACTIONS (6)
  - Gastroenteritis viral [Unknown]
  - Cataract [Unknown]
  - Heart rate increased [Unknown]
  - Therapeutic response decreased [Unknown]
  - Cough [Unknown]
  - Upper airway obstruction [Unknown]

NARRATIVE: CASE EVENT DATE: 20121130
